FAERS Safety Report 23062612 (Version 2)
Quarter: 2025Q3

REPORT INFORMATION
  Report Type: Spontaneous
  Country: EU (occurrence: EU)
  Receive Date: 20231013
  Receipt Date: 20250703
  Transmission Date: 20251020
  Serious: Yes (Death, Hospitalization, Other)
  Sender: Steriscience PTE
  Company Number: EU-STERISCIENCE B.V.-2023-ST-002012

PATIENT
  Sex: Male
  Weight: 3 kg

DRUGS (4)
  1. METOPROLOL [Suspect]
     Active Substance: METOPROLOL
     Indication: Hypertrophic cardiomyopathy
     Route: 065
  2. HUMAN IMMUNOGLOBULIN G [Suspect]
     Active Substance: HUMAN IMMUNOGLOBULIN G
     Indication: Endocarditis
     Route: 042
  3. HUMAN IMMUNOGLOBULIN G [Suspect]
     Active Substance: HUMAN IMMUNOGLOBULIN G
     Indication: Sepsis
  4. DEXTROSE [Concomitant]
     Active Substance: DEXTROSE MONOHYDRATE
     Indication: Hypoglycaemia
     Route: 042

REACTIONS (1)
  - Drug ineffective for unapproved indication [Fatal]
